FAERS Safety Report 24140779 (Version 1)
Quarter: 2024Q3

REPORT INFORMATION
  Report Type: Spontaneous
  Country: CN (occurrence: CN)
  Receive Date: 20240726
  Receipt Date: 20240726
  Transmission Date: 20241017
  Serious: Yes (Hospitalization)
  Sender: CHEPLAPHARM
  Company Number: CN-CHEPLA-2024009476

PATIENT
  Age: 12 Year
  Sex: Female
  Weight: 34 kg

DRUGS (1)
  1. OLANZAPINE [Suspect]
     Active Substance: OLANZAPINE
     Dosage: DAILY DOSE: 10 MILLIGRAM
     Dates: start: 20201010, end: 20201204

REACTIONS (5)
  - Latent autoimmune diabetes in adults [Recovering/Resolving]
  - Weight increased [Unknown]
  - Dry mouth [Unknown]
  - Polydipsia [Unknown]
  - Polyuria [Unknown]
